FAERS Safety Report 5815373-2 (Version None)
Quarter: 2008Q3

REPORT INFORMATION
  Report Type: 
  Country: None (occurrence: None)
  Receive Date: 20080718
  Receipt Date: 20080710
  Transmission Date: 20090109
  Serious: Yes (Life-Threatening, Hospitalization)
  Sender: FDA-Public Use
  Company Number: DE-ELI_LILLY_AND_COMPANY-DE200807002419

PATIENT
  Sex: Male

DRUGS (3)
  1. ZYPREXA [Suspect]
     Indication: SCHIZOPHRENIA
     Dosage: 15 MG, DAILY (1/D)
     Route: 048
     Dates: start: 20070701, end: 20080601
  2. TREVILOR [Concomitant]
     Dates: start: 20070701
  3. EUTHYROX [Concomitant]
     Dates: start: 20070701

REACTIONS (2)
  - BONE MARROW DISORDER [None]
  - PERNICIOUS ANAEMIA [None]
